FAERS Safety Report 4534188-9 (Version None)
Quarter: 2004Q4

REPORT INFORMATION
  Report Type: 
  Country: None (occurrence: None)
  Receive Date: 20041221
  Receipt Date: 20041221
  Transmission Date: 20050328
  Serious: Yes (Other)
  Sender: FDA-Public Use
  Company Number: None

PATIENT
  Age: 31 Year
  Sex: Female
  Weight: 49.8957 kg

DRUGS (2)
  1. ZOLOFT [Suspect]
     Indication: ANXIETY
     Dosage: 50 MG   3X A DAY   ORAL
     Route: 048
     Dates: start: 20030201, end: 20041215
  2. ZOLOFT [Suspect]
     Indication: DEPRESSION
     Dosage: 50 MG   3X A DAY   ORAL
     Route: 048
     Dates: start: 20030201, end: 20041215

REACTIONS (14)
  - COLITIS [None]
  - CONDITION AGGRAVATED [None]
  - COUGH [None]
  - CRYING [None]
  - DEPRESSION [None]
  - FEELING ABNORMAL [None]
  - FEELING COLD [None]
  - FLAT AFFECT [None]
  - HYPOAESTHESIA ORAL [None]
  - MALAISE [None]
  - PANIC REACTION [None]
  - PARANOIA [None]
  - TREATMENT NONCOMPLIANCE [None]
  - WEIGHT DECREASED [None]
